FAERS Safety Report 11210909 (Version 1)
Quarter: 2015Q2

REPORT INFORMATION
  Report Type: Report from Study
  Country: BR (occurrence: BR)
  Receive Date: 20150623
  Receipt Date: 20150623
  Transmission Date: 20150821
  Serious: Yes (Death, Hospitalization, Other)
  Sender: FDA-Public Use
  Company Number: PHHY2015BR074785

PATIENT
  Sex: Male

DRUGS (1)
  1. DIOVAN AMLO FIX [Suspect]
     Active Substance: AMLODIPINE\VALSARTAN
     Indication: HYPERTENSION
     Dosage: 2 DF, UNK
     Route: 065

REACTIONS (5)
  - Blood pressure increased [Fatal]
  - Renal disorder [Fatal]
  - Malaise [Fatal]
  - Cerebrovascular accident [Fatal]
  - Infarction [Fatal]

NARRATIVE: CASE EVENT DATE: 2014
